FAERS Safety Report 23679502 (Version 3)
Quarter: 2024Q2

REPORT INFORMATION
  Report Type: Spontaneous
  Country: IT (occurrence: IT)
  Receive Date: 20240327
  Receipt Date: 20240510
  Transmission Date: 20240716
  Serious: Yes (Hospitalization, Other)
  Sender: FDA-Public Use
  Company Number: IT-BIOCON BIOLOGICS LIMITED-BBL2024001604

PATIENT
  Age: 12 Year
  Sex: Female

DRUGS (12)
  1. METHOTREXATE [Suspect]
     Active Substance: METHOTREXATE
     Indication: Crohn^s disease
     Dosage: UNK
     Route: 065
  2. ADALIMUMAB [Suspect]
     Active Substance: ADALIMUMAB\ISOPROPYL ALCOHOL
     Indication: Crohn^s disease
     Dosage: RESTARTED AGAIN AFTER 2 MONTHS OF ADMISSION
     Route: 058
  3. ADALIMUMAB [Suspect]
     Active Substance: ADALIMUMAB\ISOPROPYL ALCOHOL
     Dosage: DISCONTINUED BEFORE 1 MONTH OF ADMISSION DUE TO LOSS OF SECONDARY RESPONSE
     Route: 058
  4. USTEKINUMAB [Suspect]
     Active Substance: USTEKINUMAB
     Indication: Crohn^s disease
     Dosage: 2 MILLIGRAM/KILOGRAM (3 WEEKLY CONSECUTIVELY,  EQUIVALENT TO A SINGLE INTRAVENOUS DOSE OF 6MG/ KG)
     Route: 058
  5. SULFASALAZINE [Suspect]
     Active Substance: SULFASALAZINE
     Indication: Crohn^s disease
     Dosage: UNK
     Route: 065
  6. METHYLPREDNISOLONE [Suspect]
     Active Substance: METHYLPREDNISOLONE
     Indication: Arthritis
     Dosage: 1 MILLIGRAM/KILOGRAM, QD
     Route: 042
  7. RIFAMPIN [Suspect]
     Active Substance: RIFAMPIN
     Indication: Disseminated tuberculosis
     Dosage: UNK
     Route: 065
  8. IVERMECTIN [Concomitant]
     Active Substance: IVERMECTIN
     Indication: Infection prophylaxis
     Dosage: 200 MICROGRAM/KILOGRAM
     Route: 065
  9. MEROPENEM [Concomitant]
     Active Substance: MEROPENEM
     Indication: Evidence based treatment
     Dosage: UNK
     Route: 065
  10. TEICOPLANIN [Concomitant]
     Active Substance: TEICOPLANIN
     Indication: Evidence based treatment
     Dosage: UNK
     Route: 065
  11. FLUCONAZOLE [Concomitant]
     Active Substance: FLUCONAZOLE
     Indication: Evidence based treatment
     Dosage: UNK
     Route: 065
  12. ISONIAZID [Concomitant]
     Active Substance: ISONIAZID
     Indication: Disseminated tuberculosis
     Dosage: UNK
     Route: 065

REACTIONS (10)
  - Joint range of motion decreased [Unknown]
  - Joint ankylosis [Unknown]
  - Mobility decreased [Unknown]
  - Polyarthritis [Recovered/Resolved]
  - Hepatotoxicity [Unknown]
  - Disseminated tuberculosis [Recovered/Resolved]
  - Off label use [Unknown]
  - Poncet^s disease [Recovered/Resolved]
  - Abdominal pain upper [Unknown]
  - Treatment failure [Unknown]
